FAERS Safety Report 11407650 (Version 1)
Quarter: 2015Q3

REPORT INFORMATION
  Report Type: Report from Study
  Country: FR (occurrence: FR)
  Receive Date: 20150821
  Receipt Date: 20150821
  Transmission Date: 20151125
  Serious: Yes (Hospitalization, Disabling, Other)
  Sender: FDA-Public Use
  Company Number: FR-BRISTOL-MYERS SQUIBB COMPANY-BMS-2015-054332

PATIENT
  Age: 45 Year
  Sex: Female
  Weight: 50 kg

DRUGS (1)
  1. NIVOLUMAB [Suspect]
     Active Substance: NIVOLUMAB
     Indication: MALIGNANT MELANOMA
     Dosage: 162 MG, UNK
     Route: 065
     Dates: start: 20150723, end: 20150723

REACTIONS (3)
  - Thrombosis [Recovering/Resolving]
  - Leg amputation [Unknown]
  - Peripheral ischaemia [Recovering/Resolving]

NARRATIVE: CASE EVENT DATE: 201507
